FAERS Safety Report 9146170 (Version 3)
Quarter: 2013Q2

REPORT INFORMATION
  Report Type: Report from Study
  Country: GB (occurrence: GB)
  Receive Date: 20130307
  Receipt Date: 20130502
  Transmission Date: 20140414
  Serious: Yes (Other)
  Sender: FDA-Public Use
  Company Number: GB-VERTEX PHARMACEUTICALS INC.-2013-003070

PATIENT
  Age: 64 Year
  Sex: Male

DRUGS (6)
  1. VX-950 (TELAPREVIR) [Suspect]
     Indication: HEPATITIS C
     Dosage: 750 MG, TID
     Route: 048
     Dates: start: 20130114
  2. PEGYLATED INTERFERON [Concomitant]
     Indication: PRODUCT USED FOR UNKNOWN INDICATION
     Dosage: DOSAGE FORM: UNSPECIFIED
     Route: 065
  3. RIBAVIRIN [Concomitant]
     Indication: PRODUCT USED FOR UNKNOWN INDICATION
     Dosage: DOSAGE FORM: UNSPECIFIED
     Route: 065
  4. METOCLOPRAMIDE [Concomitant]
     Indication: NAUSEA
     Dosage: DOSAGE FORM: UNSPECIFIED
     Route: 048
     Dates: start: 20130114
  5. PIRITON [Concomitant]
     Indication: PRURITUS
     Dosage: DOSAGE FORM: UNSPECIFIED
     Route: 048
     Dates: start: 20130114
  6. HYDROMOL [Concomitant]
     Indication: DRY SKIN
     Dosage: DOSAGE FORM: UNSPECIFIED
     Route: 061
     Dates: start: 20130114

REACTIONS (6)
  - Skin reaction [Recovered/Resolved]
  - Rash [Recovered/Resolved]
  - Malaise [Unknown]
  - Decreased appetite [Unknown]
  - Nausea [Unknown]
  - Pruritus [Recovered/Resolved]
